FAERS Safety Report 9517886 (Version 1)
Quarter: 2013Q3

REPORT INFORMATION
  Report Type: Spontaneous
  Country: JP (occurrence: JP)
  Receive Date: 20130912
  Receipt Date: 20130912
  Transmission Date: 20140515
  Serious: Yes (Other)
  Sender: FDA-Public Use
  Company Number: JP-RANBAXY-2013RR-72930

PATIENT
  Age: 73 Year
  Sex: Male

DRUGS (2)
  1. SERTRALINE [Suspect]
     Indication: ANTIDEPRESSANT THERAPY
     Dosage: 50 MG
     Route: 065
  2. MIRTAZAPINE [Suspect]
     Indication: ANTIDEPRESSANT THERAPY
     Dosage: 30 MG
     Route: 065

REACTIONS (2)
  - Status epilepticus [Recovering/Resolving]
  - Catatonia [Recovering/Resolving]
